FAERS Safety Report 8761042 (Version 3)
Quarter: 2012Q4

REPORT INFORMATION
  Report Type: 
  Country: ZA (occurrence: ZA)
  Receive Date: 20120830
  Receipt Date: 20120913
  Transmission Date: 20130627
  Serious: Yes (Other)
  Sender: FDA-Public Use
  Company Number: ZA-NOVOPROD-343146

PATIENT
  Age: 35 Year
  Sex: Female
  Weight: 93 kg

DRUGS (2)
  1. NOVORAPID FLEXPEN [Suspect]
     Indication: GESTATIONAL DIABETES
     Dosage: 12 U, qd
     Route: 058
     Dates: start: 20100104
  2. PROTAPHANE FLEXPEN [Suspect]
     Indication: GESTATIONAL DIABETES
     Dosage: 10 U, qd
     Route: 058
     Dates: start: 20120401

REACTIONS (4)
  - Premature labour [Recovered/Resolved]
  - Exposure during pregnancy [Recovered/Resolved]
  - Caesarean section [None]
  - Gestational diabetes [None]
